FAERS Safety Report 9462011 (Version 1)
Quarter: 2013Q3

REPORT INFORMATION
  Report Type: Spontaneous
  Country: US (occurrence: None)
  Receive Date: 20130815
  Receipt Date: 20130815
  Transmission Date: 20140515
  Serious: Yes (Hospitalization)
  Sender: FDA-Public Use
  Company Number: None

PATIENT
  Age: 78 Year
  Sex: Male
  Weight: 76.3 kg

DRUGS (10)
  1. LUNESTA [Suspect]
     Indication: INSOMNIA
     Route: 048
  2. CYMBALTA [Suspect]
     Indication: PAIN
     Dosage: 60MG BID PO
     Route: 048
  3. XANAX XR [Suspect]
     Dosage: 60MG BID PO
     Route: 048
  4. METOPROLOL [Concomitant]
  5. VITAMIN B12 [Concomitant]
  6. NTG [Concomitant]
  7. ATORVASTATIN [Concomitant]
  8. IMDUR [Concomitant]
  9. AMLODIPINE [Concomitant]
  10. FLOMAX [Concomitant]

REACTIONS (2)
  - Hyperglycaemia [None]
  - Cogwheel rigidity [None]
